FAERS Safety Report 12231672 (Version 1)
Quarter: 2016Q2

REPORT INFORMATION
  Report Type: Spontaneous
  Country: US (occurrence: US)
  Receive Date: 20160401
  Receipt Date: 20160401
  Transmission Date: 20160815
  Serious: Yes (Other)
  Sender: FDA-Public Use
  Company Number: US-BAYER-2016-060174

PATIENT
  Age: 47 Year
  Sex: Female
  Weight: 68.4 kg

DRUGS (4)
  1. EFFEXOR XR [Suspect]
     Active Substance: VENLAFAXINE HYDROCHLORIDE
     Indication: PANIC ATTACK
  2. PREDNISONE. [Suspect]
     Active Substance: PREDNISONE
     Indication: INFLUENZA LIKE ILLNESS
     Dosage: 3 MG, UNK
  3. EFFEXOR XR [Suspect]
     Active Substance: VENLAFAXINE HYDROCHLORIDE
     Indication: ANXIETY
     Dosage: 75 MG, QD
     Route: 048
     Dates: start: 201603
  4. MIRENA [Suspect]
     Active Substance: LEVONORGESTREL
     Dosage: 20 MCG/24HR, CONT
     Route: 015
     Dates: start: 2015

REACTIONS (8)
  - Anxiety [Not Recovered/Not Resolved]
  - Panic attack [Recovered/Resolved]
  - Immune system disorder [None]
  - Influenza like illness [None]
  - Upper respiratory tract infection [None]
  - Malaise [None]
  - Nausea [Recovered/Resolved]
  - Hormone level abnormal [None]

NARRATIVE: CASE EVENT DATE: 2016
